FAERS Safety Report 4482313-0 (Version None)
Quarter: 2004Q4

REPORT INFORMATION
  Report Type: 
  Country: None (occurrence: None)
  Receive Date: 20041022
  Receipt Date: 20041012
  Transmission Date: 20050328
  Serious: Yes (Hospitalization)
  Sender: FDA-Public Use
  Company Number: CN-MERCK-0410CHN00015

PATIENT
  Age: 62 Year
  Sex: Female

DRUGS (4)
  1. VIOXX [Suspect]
     Indication: PERIARTHRITIS
     Route: 048
     Dates: start: 20040903, end: 20040901
  2. CORTICOSTEROIDS (UNSPECIFIED) [Concomitant]
     Indication: PERIARTHRITIS
     Route: 051
     Dates: start: 20040903
  3. GLUCOSAMINE HYDROCHLORIDE [Concomitant]
     Indication: PERIARTHRITIS
     Route: 065
     Dates: start: 20040903
  4. HYALURONATE SODIUM [Concomitant]
     Indication: PERIARTHRITIS
     Route: 051
     Dates: start: 20040903

REACTIONS (2)
  - FACIAL PALSY [None]
  - LACUNAR INFARCTION [None]
